FAERS Safety Report 13553263 (Version 1)
Quarter: 2017Q2

REPORT INFORMATION
  Report Type: Spontaneous
  Country: US (occurrence: US)
  Receive Date: 20170517
  Receipt Date: 20170517
  Transmission Date: 20170830
  Serious: Yes (Other)
  Sender: FDA-Public Use
  Company Number: US-WEST-WARD PHARMACEUTICALS CORP.-US-H14001-17-01428

PATIENT
  Age: 18 Month
  Sex: Female
  Weight: 9.08 kg

DRUGS (2)
  1. OXCARBAZEPINE. [Suspect]
     Active Substance: OXCARBAZEPINE
     Indication: SEIZURE
     Route: 048
     Dates: start: 20161110, end: 20170405
  2. EYE DROPS [Concomitant]
     Active Substance: UNSPECIFIED INGREDIENT
     Indication: SEIZURE
     Route: 065

REACTIONS (11)
  - Somnolence [Unknown]
  - Atonic seizures [Recovered/Resolved]
  - Rash [Recovered/Resolved]
  - Scratch [Recovered/Resolved]
  - Fatigue [Unknown]
  - Eczema [Recovered/Resolved]
  - Seizure [Recovered/Resolved]
  - Condition aggravated [Recovered/Resolved]
  - Unevaluable event [Unknown]
  - Drug administered to patient of inappropriate age [Recovered/Resolved]
  - Drug effect incomplete [Recovered/Resolved]

NARRATIVE: CASE EVENT DATE: 201611
